FAERS Safety Report 9878902 (Version 1)
Quarter: 2014Q1

REPORT INFORMATION
  Report Type: Spontaneous
  Country: CA (occurrence: CA)
  Receive Date: 20140206
  Receipt Date: 20140206
  Transmission Date: 20141002
  Serious: Yes (Other)
  Sender: FDA-Public Use
  Company Number: CA-ABBVIE-14P-028-1197694-00

PATIENT
  Sex: 0

DRUGS (5)
  1. NORVIR [Suspect]
     Indication: PRODUCT USED FOR UNKNOWN INDICATION
  2. ACYCLOVIR [Interacting]
     Indication: PRODUCT USED FOR UNKNOWN INDICATION
  3. SAQUINAVIR [Interacting]
     Indication: PRODUCT USED FOR UNKNOWN INDICATION
  4. SELENIUM [Interacting]
     Indication: PRODUCT USED FOR UNKNOWN INDICATION
  5. ZERIT [Interacting]
     Indication: PRODUCT USED FOR UNKNOWN INDICATION

REACTIONS (2)
  - Drug interaction [Unknown]
  - Neuropathy peripheral [Unknown]
